FAERS Safety Report 6117830-0 (Version None)
Quarter: 2009Q1

REPORT INFORMATION
  Report Type: 
  Country: None (occurrence: None)
  Receive Date: 20090314
  Receipt Date: 20090210
  Transmission Date: 20090719
  Serious: Yes (Other)
  Sender: FDA-Public Use
  Company Number: US-ABBOTT-09P-163-0500780-00

PATIENT
  Sex: Male
  Weight: 74.002 kg

DRUGS (9)
  1. HUMIRA [Suspect]
     Indication: CROHN'S DISEASE
     Route: 058
     Dates: start: 20071001
  2. VITAMIN B-12 [Suspect]
     Indication: CROHN'S DISEASE
  3. PROAIR HFA [Concomitant]
     Indication: ASTHMA
  4. CIPROFLOXACIN HCL [Concomitant]
     Indication: BRONCHITIS
  5. TYLENOL W/ CODEINE NO. 3 [Concomitant]
     Indication: PAIN
  6. LOMOTIL [Concomitant]
     Indication: DIARRHOEA
  7. LASIX [Concomitant]
     Indication: OEDEMA PERIPHERAL
  8. BENADRYL [Concomitant]
     Indication: PYREXIA
     Dates: start: 20090115
  9. BENADRYL [Concomitant]
     Indication: PREMEDICATION

REACTIONS (6)
  - FEELING ABNORMAL [None]
  - HYPOAESTHESIA [None]
  - MUSCULAR WEAKNESS [None]
  - PAIN [None]
  - PYREXIA [None]
  - STAPHYLOCOCCAL INFECTION [None]
